FAERS Safety Report 20109143 (Version 1)
Quarter: 2021Q4

REPORT INFORMATION
  Report Type: Spontaneous
  Country: CN (occurrence: CN)
  Receive Date: 20211124
  Receipt Date: 20211124
  Transmission Date: 20220303
  Serious: Yes (Hospitalization)
  Sender: FDA-Public Use
  Company Number: CN-BoehringerIngelheim-2021-BI-139384

PATIENT
  Age: 71 Year
  Sex: Female
  Weight: 66 kg

DRUGS (2)
  1. JARDIANCE [Suspect]
     Active Substance: EMPAGLIFLOZIN
     Indication: Diabetes mellitus
     Route: 048
     Dates: start: 20211106, end: 20211114
  2. NOVORAPID [Concomitant]
     Active Substance: INSULIN ASPART
     Indication: Diabetes mellitus
     Route: 058
     Dates: start: 20210901, end: 20211105

REACTIONS (6)
  - Nausea [Recovering/Resolving]
  - Palpitations [Recovering/Resolving]
  - Vomiting [Recovering/Resolving]
  - Blood glucose increased [Recovering/Resolving]
  - Asthenia [Recovering/Resolving]
  - Off label use [Unknown]

NARRATIVE: CASE EVENT DATE: 20211107
